FAERS Safety Report 25331853 (Version 1)
Quarter: 2025Q2

REPORT INFORMATION
  Report Type: Report from Study
  Country: US (occurrence: US)
  Receive Date: 20250519
  Receipt Date: 20250519
  Transmission Date: 20250717
  Serious: Yes (Other)
  Sender: ALEXION PHARMACEUTICALS
  Company Number: US-AstraZeneca-CH-00830580A

PATIENT
  Age: 54 Year

DRUGS (1)
  1. STRENSIQ [Suspect]
     Active Substance: ASFOTASE ALFA
     Indication: Hypophosphatasia
     Dosage: 160 MILLIGRAM, TIW
     Route: 065

REACTIONS (14)
  - Apnoea [Unknown]
  - Injection site mass [Recovered/Resolved]
  - Arthralgia [Unknown]
  - Nasal congestion [Unknown]
  - Fatigue [Unknown]
  - Myalgia [Unknown]
  - Hypoaesthesia [Unknown]
  - Rash [Unknown]
  - Tooth disorder [Unknown]
  - Upper-airway cough syndrome [Unknown]
  - Palpitations [Unknown]
  - Hypersensitivity [Unknown]
  - Glycosylated haemoglobin increased [Unknown]
  - Low density lipoprotein increased [Unknown]
